FAERS Safety Report 4842951-X (Version None)
Quarter: 2005Q4

REPORT INFORMATION
  Report Type: 
  Country: None (occurrence: None)
  Receive Date: 20051130
  Receipt Date: 20051118
  Transmission Date: 20060501
  Serious: Yes (Hospitalization, Other)
  Sender: FDA-Public Use
  Company Number: GB-2005-021646

PATIENT
  Age: 49 Year
  Sex: Female
  Weight: 58 kg

DRUGS (2)
  1. MIRENA [Suspect]
     Indication: POLYMENORRHOEA
     Dosage: 20 ?G/DAY, CONT, INTRA-UTERINE
     Route: 015
     Dates: start: 20041001, end: 20051027
  2. TRANEXAMIC ACID (TRANEXAMIC ACID) [Concomitant]

REACTIONS (2)
  - BREAST CANCER RECURRENT [None]
  - PROGESTERONE RECEPTOR ASSAY POSITIVE [None]
